FAERS Safety Report 19355625 (Version 1)
Quarter: 2021Q2

REPORT INFORMATION
  Report Type: Spontaneous
  Country: CA (occurrence: CA)
  Receive Date: 20210602
  Receipt Date: 20210602
  Transmission Date: 20210717
  Serious: Yes (Hospitalization, Other)
  Sender: FDA-Public Use
  Company Number: CA-AUROBINDO-AUR-APL-2021-022540

PATIENT
  Age: 51 Year
  Sex: Female

DRUGS (13)
  1. PREDNISONE. [Suspect]
     Active Substance: PREDNISONE
     Indication: ASTHMA
     Dosage: 30 MILLIGRAM
     Route: 048
  2. MONTELUKAST [Suspect]
     Active Substance: MONTELUKAST SODIUM
     Indication: ASTHMA
     Dosage: 10 MILLIGRAM, ONCE A DAY
     Route: 065
  3. FORMOTEROL [Suspect]
     Active Substance: FORMOTEROL
     Indication: ASTHMA
     Dosage: 2 DOSAGE FORM, TWO TIMES A DAY
  4. SINGULAIR [Suspect]
     Active Substance: MONTELUKAST SODIUM
     Indication: ASTHMA
     Dosage: 2 DOSAGE FORM, TWO TIMES A DAY
     Route: 065
  5. SPIRIVA [Suspect]
     Active Substance: TIOTROPIUM BROMIDE MONOHYDRATE
     Indication: ASTHMA
     Dosage: 2 DOSAGE FORM, ONCE A DAY
  6. THEOPHYLLINE [Suspect]
     Active Substance: THEOPHYLLINE ANHYDROUS
     Indication: ASTHMA
     Dosage: 400 MILLIGRAM, ONCE A DAY
     Route: 065
  7. ALVESCO [Suspect]
     Active Substance: CICLESONIDE
     Indication: ASTHMA
     Dosage: 2 DOSAGE FORM, TWO TIMES A DAY
  8. PREDNISONE. [Suspect]
     Active Substance: PREDNISONE
     Indication: PRODUCT USED FOR UNKNOWN INDICATION
     Dosage: 45 MILLIGRAM, ONCE A DAY
     Route: 048
  9. TIOTROPIUM BROMIDE [Suspect]
     Active Substance: TIOTROPIUM BROMIDE
     Indication: ASTHMA
     Dosage: 2 DOSAGE FORM, ONCE A DAY
  10. FLOVENT [Suspect]
     Active Substance: FLUTICASONE PROPIONATE
     Indication: ASTHMA
     Dosage: 1 DOSAGE FORM, TWO TIMES A DAY
  11. SALBUTAMOL [Suspect]
     Active Substance: ALBUTEROL
     Indication: ASTHMA
     Dosage: 100 MILLIGRAM
     Route: 065
  12. AZITHROMYCIN ANHYDROUS. [Suspect]
     Active Substance: AZITHROMYCIN ANHYDROUS
     Indication: ASTHMA
     Dosage: 250 MILLIGRAM
     Route: 065
  13. BUDESONIDE AND FORMOTEROL [Suspect]
     Active Substance: BUDESONIDE\FORMOTEROL
     Indication: ASTHMA
     Dosage: 2 DOSAGE FORM, TWO TIMES A DAY

REACTIONS (26)
  - Blood test abnormal [Unknown]
  - Pain in extremity [Unknown]
  - Post procedural infection [Unknown]
  - Sleep disorder due to a general medical condition [Unknown]
  - Hiatus hernia [Unknown]
  - Hypogammaglobulinaemia [Unknown]
  - Pain in jaw [Unknown]
  - Disability [Unknown]
  - Food allergy [Unknown]
  - Pain [Unknown]
  - Upper respiratory tract infection [Unknown]
  - Wheezing [Unknown]
  - Chest pain [Unknown]
  - Nausea [Unknown]
  - Therapeutic product effect incomplete [Unknown]
  - Vomiting [Unknown]
  - Adverse drug reaction [Unknown]
  - Loss of personal independence in daily activities [Unknown]
  - Oesophagogastroduodenoscopy [Unknown]
  - Procedural pain [Unknown]
  - Viral infection [Unknown]
  - Abdominal pain [Unknown]
  - Asthma [Unknown]
  - Dyspnoea [Unknown]
  - Eosinophil count increased [Unknown]
  - Unevaluable event [Unknown]
